FAERS Safety Report 6242653-1 (Version None)
Quarter: 2009Q2

REPORT INFORMATION
  Report Type: 
  Country: None (occurrence: None)
  Receive Date: 20090624
  Receipt Date: 20090612
  Transmission Date: 20091009
  Serious: Yes (Other)
  Sender: FDA-Public Use
  Company Number: PL-WYE-H09806809

PATIENT
  Age: 66 Year
  Sex: Male

DRUGS (4)
  1. CORDARONE [Suspect]
     Indication: VENTRICULAR ARRHYTHMIA
     Route: 048
     Dates: start: 20090330, end: 20090512
  2. CORDARONE [Suspect]
     Indication: ARRHYTHMIA SUPRAVENTRICULAR
     Route: 048
     Dates: start: 20090513
  3. ELTROXIN [Concomitant]
     Indication: THYROID DISORDER
     Route: 048
     Dates: start: 20020215, end: 20090509
  4. ELTROXIN [Concomitant]
     Dosage: 100 UG DAILY AND 125 MG 2 TIMES PER WEEK
     Route: 048
     Dates: start: 20090510

REACTIONS (3)
  - CONDITION AGGRAVATED [None]
  - HYPOTHYROIDISM [None]
  - SUBILEUS [None]
